FAERS Safety Report 10206774 (Version 1)
Quarter: 2014Q2

REPORT INFORMATION
  Report Type: Spontaneous
  Country: GB (occurrence: GB)
  Receive Date: 20140530
  Receipt Date: 20140530
  Transmission Date: 20141212
  Serious: Yes (Life-Threatening)
  Sender: FDA-Public Use
  Company Number: GB-SA-2014SA068043

PATIENT
  Age: 43 Year
  Sex: Male
  Weight: 79 kg

DRUGS (8)
  1. AFLIBERCEPT [Suspect]
     Indication: COLORECTAL CANCER METASTATIC
     Dosage: 330MG AS SINGLE DOSE ON 9/04 AND 22/04
     Route: 042
     Dates: start: 20140409, end: 20140409
  2. AFLIBERCEPT [Suspect]
     Indication: COLORECTAL CANCER METASTATIC
     Dosage: 330MG AS SINGLE DOSE ON 9/04 AND 22/04
     Route: 042
     Dates: start: 20140422, end: 20140422
  3. DOMPERIDONE [Concomitant]
  4. DIORALYTE [Concomitant]
  5. LOPERAMIDE [Concomitant]
  6. PARACETAMOL [Concomitant]
  7. NORMAL SALINE [Concomitant]
  8. OMEPRAZOLE [Concomitant]

REACTIONS (2)
  - Renal vascular thrombosis [Not Recovered/Not Resolved]
  - Renal infarct [Not Recovered/Not Resolved]
